FAERS Safety Report 7722998-6 (Version None)
Quarter: 2011Q3

REPORT INFORMATION
  Report Type: 
  Country: None (occurrence: None)
  Receive Date: 20110901
  Receipt Date: 20110830
  Transmission Date: 20111222
  Serious: Yes (Hospitalization)
  Sender: FDA-Public Use
  Company Number: US-CEPHALON-2011004547

PATIENT
  Sex: Male

DRUGS (1)
  1. FENTANYL CITRATE [Suspect]
     Route: 048

REACTIONS (2)
  - ACCIDENTAL DRUG INTAKE BY CHILD [None]
  - SOMNOLENCE [None]
